FAERS Safety Report 25117960 (Version 4)
Quarter: 2025Q3

REPORT INFORMATION
  Report Type: Report from Study
  Country: EU (occurrence: EU)
  Receive Date: 20250325
  Receipt Date: 20250908
  Transmission Date: 20251020
  Serious: Yes (Hospitalization)
  Sender: UCB
  Company Number: EU-UCBSA-2025016215

PATIENT
  Age: 44 Year
  Sex: Female
  Weight: 88 kg

DRUGS (10)
  1. BIMEKIZUMAB [Suspect]
     Active Substance: BIMEKIZUMAB
     Indication: Hidradenitis
     Dosage: 320 MILLIGRAM, EV 2 WEEKS(QOW)
     Route: 058
     Dates: start: 20250214, end: 20250314
  2. BIMEKIZUMAB [Suspect]
     Active Substance: BIMEKIZUMAB
     Dosage: 320 MILLIGRAM, EV 2 WEEKS(QOW)
     Route: 058
     Dates: start: 20250321
  3. BIMEKIZUMAB [Suspect]
     Active Substance: BIMEKIZUMAB
     Dosage: 320 MILLIGRAM, EV 4 WEEKS
     Route: 058
     Dates: start: 20250801
  4. CALCIUM CARBONATE [Concomitant]
     Active Substance: CALCIUM CARBONATE
     Indication: Gastrooesophageal reflux disease
     Dates: start: 2019
  5. CETIRIZINE HYDROCHLORIDE [Concomitant]
     Active Substance: CETIRIZINE HYDROCHLORIDE
     Indication: Conjunctivitis allergic
     Dates: start: 1982
  6. NASIC [OXYMETAZOLINE] [Concomitant]
     Indication: Conjunctivitis allergic
     Dates: start: 1982
  7. NOVALGIN (METAMIZOLE SODIUM) [Concomitant]
     Active Substance: METAMIZOLE SODIUM
     Indication: Hidradenitis
     Dosage: 1 GRAM, 3 TIMES (DISCONTINUED DUE TO INTOLERANCE)
     Dates: start: 20250213, end: 20250215
  8. CLOTRIMAZOLE [Concomitant]
     Active Substance: CLOTRIMAZOLE
     Indication: Hidradenitis
     Dates: start: 20250515
  9. ACETAMINOPHEN [Concomitant]
     Active Substance: ACETAMINOPHEN
     Indication: Hidradenitis
     Dates: start: 202401
  10. CALCIUM CARBONATE;MAGNESIUM CARBONATE [Concomitant]
     Indication: Gastrooesophageal reflux disease
     Dates: start: 2019

REACTIONS (3)
  - Laryngitis [Recovered/Resolved]
  - Intertrigo [Not Recovered/Not Resolved]
  - Respiratory tract infection viral [Recovered/Resolved]

NARRATIVE: CASE EVENT DATE: 20250215
